FAERS Safety Report 7459281-2 (Version None)
Quarter: 2011Q2

REPORT INFORMATION
  Report Type: 
  Country: None (occurrence: None)
  Receive Date: 20110504
  Receipt Date: 20110504
  Transmission Date: 20111010
  Serious: No
  Sender: FDA-Public Use
  Company Number: None

PATIENT
  Age: 20 Year
  Sex: Male
  Weight: 66.6788 kg

DRUGS (1)
  1. ADEROIL [Suspect]
     Dosage: 30 1 OTHER
     Route: 050

REACTIONS (6)
  - MYDRIASIS [None]
  - BLOOD URINE PRESENT [None]
  - BACK PAIN [None]
  - HEART RATE INCREASED [None]
  - FEELING ABNORMAL [None]
  - ABDOMINAL PAIN UPPER [None]
